FAERS Safety Report 9898405 (Version 4)
Quarter: 2014Q1

REPORT INFORMATION
  Report Type: Report from Study
  Country: GB (occurrence: GB)
  Receive Date: 20140214
  Receipt Date: 20140328
  Transmission Date: 20141002
  Serious: Yes (Death, Hospitalization)
  Sender: FDA-Public Use
  Company Number: GB-GLAXOSMITHKLINE-B0963965A

PATIENT
  Age: 66 Year
  Sex: Male
  Weight: 66 kg

DRUGS (12)
  1. OFATUMUMAB [Suspect]
     Indication: CHRONIC LYMPHOCYTIC LEUKAEMIA
     Dosage: 1000MG CYCLIC
     Route: 042
     Dates: start: 20131030, end: 20140110
  2. DEXAMETHASONE [Suspect]
     Indication: CHRONIC LYMPHOCYTIC LEUKAEMIA
     Route: 048
     Dates: start: 20130916, end: 20140109
  3. LENALIDOMIDE [Suspect]
     Indication: CHRONIC LYMPHOCYTIC LEUKAEMIA
     Route: 048
     Dates: start: 20130930, end: 20140121
  4. ALLOPURINOL [Concomitant]
  5. COTRIMOXAZOLE [Concomitant]
     Route: 048
     Dates: start: 20130916, end: 20140119
  6. ACICLOVIR [Concomitant]
     Route: 048
     Dates: start: 20130916, end: 20140131
  7. LANSOPRAZOLE [Concomitant]
     Route: 048
     Dates: start: 20130916, end: 20140202
  8. ALENDRONIC ACID [Concomitant]
     Route: 048
     Dates: start: 20130916, end: 20140128
  9. ASPIRIN [Concomitant]
  10. IMMUNOGLOBULIN [Concomitant]
  11. GCSF [Concomitant]
     Route: 058
     Dates: start: 20131014, end: 20140129
  12. FLUCONAZOLE [Concomitant]

REACTIONS (1)
  - Encephalitis [Fatal]
